FAERS Safety Report 6958672-3 (Version None)
Quarter: 2010Q3

REPORT INFORMATION
  Report Type: 
  Country: None (occurrence: None)
  Receive Date: 20100830
  Receipt Date: 20100830
  Transmission Date: 20110219
  Serious: Yes (Life-Threatening, Other)
  Sender: FDA-Public Use
  Company Number: None

PATIENT
  Age: 24 Year
  Sex: Female
  Weight: 77.1115 kg

DRUGS (1)
  1. LEVORA 0.15/30-21 [Suspect]

REACTIONS (8)
  - ABDOMINAL PAIN [None]
  - ARTHRALGIA [None]
  - DYSPNOEA [None]
  - JOINT STIFFNESS [None]
  - LIP SWELLING [None]
  - NAUSEA [None]
  - SWOLLEN TONGUE [None]
  - URTICARIA [None]
